FAERS Safety Report 5165315-0 (Version None)
Quarter: 2006Q4

REPORT INFORMATION
  Report Type: 
  Country: None (occurrence: None)
  Receive Date: 20061206
  Receipt Date: 20061129
  Transmission Date: 20070319
  Serious: Yes (Death)
  Sender: FDA-Public Use
  Company Number: US-JNJFOC-20061200077

PATIENT
  Age: 47 Year
  Sex: Female
  Weight: 165.56 kg

DRUGS (3)
  1. REOPRO [Suspect]
     Indication: PERCUTANEOUS CORONARY INTERVENTION
     Route: 042
  2. PLAVIX [Concomitant]
  3. HEPARIN [Concomitant]

REACTIONS (1)
  - RETROPERITONEAL HAEMORRHAGE [None]
